FAERS Safety Report 5486146-8 (Version None)
Quarter: 2007Q4

REPORT INFORMATION
  Report Type: 
  Country: None (occurrence: None)
  Receive Date: 20071015
  Receipt Date: 20071003
  Transmission Date: 20080405
  Serious: Yes (Other)
  Sender: FDA-Public Use
  Company Number: GB-PFIZER INC-2007071691

PATIENT
  Sex: Female
  Weight: 116 kg

DRUGS (1)
  1. CHAMPIX [Suspect]
     Indication: EX-SMOKER
     Dosage: TEXT:500UG
     Route: 048
     Dates: start: 20070201, end: 20070207

REACTIONS (3)
  - ABNORMAL DREAMS [None]
  - ANGER [None]
  - MOOD SWINGS [None]
